FAERS Safety Report 15273229 (Version 10)
Quarter: 2020Q3

REPORT INFORMATION
  Report Type: Report from Study
  Country: US (occurrence: US)
  Receive Date: 20180813
  Receipt Date: 20200713
  Transmission Date: 20201102
  Serious: Yes (Hospitalization, Other)
  Sender: FDA-Public Use
  Company Number: US-ACTELION-A-US2018-175555

PATIENT
  Sex: Female
  Weight: 99.77 kg

DRUGS (6)
  1. REVATIO [Concomitant]
     Active Substance: SILDENAFIL CITRATE
  2. PREDNISONE. [Concomitant]
     Active Substance: PREDNISONE
     Dosage: 10 MG, QD
  3. VELETRI [Suspect]
     Active Substance: EPOPROSTENOL
     Dosage: 43.4 NG/KG, PER MIN
     Route: 042
  4. VELETRI [Suspect]
     Active Substance: EPOPROSTENOL
     Dosage: 41 NG/KG, PER MIN
     Route: 042
  5. VELETRI [Suspect]
     Active Substance: EPOPROSTENOL
     Indication: PULMONARY ARTERIAL HYPERTENSION
     Dosage: 39 NG/KG, PER MIN
     Route: 042
  6. DANAZOL. [Concomitant]
     Active Substance: DANAZOL
     Dosage: 100 MG, BID

REACTIONS (17)
  - Fatigue [Unknown]
  - Vascular device infection [Unknown]
  - Device physical property issue [Unknown]
  - Transfusion [Unknown]
  - Foot fracture [Unknown]
  - Catheter site haemorrhage [Unknown]
  - Catheter site discharge [Unknown]
  - Platelet count decreased [Unknown]
  - Blood potassium decreased [Unknown]
  - Pain in jaw [Unknown]
  - Pain in extremity [Unknown]
  - Fall [Unknown]
  - Cold sweat [Unknown]
  - Device connection issue [Unknown]
  - Malaise [Unknown]
  - Catheter management [Unknown]
  - Weight decreased [Unknown]
